FAERS Safety Report 7490506-3 (Version None)
Quarter: 2011Q2

REPORT INFORMATION
  Report Type: 
  Country: None (occurrence: None)
  Receive Date: 20110512
  Receipt Date: 20110504
  Transmission Date: 20111010
  Serious: Yes (Other)
  Sender: FDA-Public Use
  Company Number: US-2011-10264

PATIENT
  Age: 9 Year
  Sex: Male

DRUGS (8)
  1. IMMUNE GLOBULIN (HUMAN) [Concomitant]
  2. CYCLOPHOSPHAMIDE [Concomitant]
  3. RECOMBINANT ACTIVATED FACTOR VII (RECOMBINANT ACTIVATED FACTOR VIII) [Concomitant]
  4. BUSULFAN [Suspect]
     Dosage: 16 MG/KG, DAILY DOSE, INTRAVENOUS
     Route: 042
  5. TACROLIMUS [Concomitant]
  6. ATGAM [Concomitant]
  7. MYCOPHENOLATE MOFETIL [Concomitant]
  8. URSODIOL [Concomitant]

REACTIONS (5)
  - HYPOTHYROIDISM [None]
  - CAPILLARY LEAK SYNDROME [None]
  - INFLAMMATION [None]
  - PLEURAL EFFUSION [None]
  - CYTOMEGALOVIRUS INFECTION [None]
